FAERS Safety Report 25526581 (Version 1)
Quarter: 2025Q3

REPORT INFORMATION
  Report Type: Spontaneous
  Country: US (occurrence: US)
  Receive Date: 20250707
  Receipt Date: 20250707
  Transmission Date: 20251020
  Serious: No
  Sender: TRAVERE THERAPEUTICS
  Company Number: US-TRAVERE-2025TVT00980

PATIENT
  Age: 49 Year
  Sex: Male

DRUGS (4)
  1. FILSPARI [Suspect]
     Active Substance: SPARSENTAN
     Indication: IgA nephropathy
     Dosage: 1 TABLET DAILY
     Route: 048
     Dates: start: 20250528
  2. BACTRIM [Concomitant]
     Active Substance: SULFAMETHOXAZOLE\TRIMETHOPRIM
  3. OMEPRAZOLE [Concomitant]
     Active Substance: OMEPRAZOLE
  4. TARPEYO [Concomitant]
     Active Substance: BUDESONIDE

REACTIONS (2)
  - Asthenia [Unknown]
  - Paraesthesia [Unknown]
